FAERS Safety Report 16895960 (Version 1)
Quarter: 2019Q4

REPORT INFORMATION
  Report Type: Spontaneous
  Country: US (occurrence: US)
  Receive Date: 20190814
  Receipt Date: 20190814
  Transmission Date: 20200122
  Serious: Yes (Hospitalization)
  Sender: FDA-Public Use
  Company Number: None

PATIENT
  Age: 58 Year
  Sex: Male

DRUGS (1)
  1. REVLIMID [Suspect]
     Active Substance: LENALIDOMIDE
     Indication: PLASMA CELL MYELOMA
     Dosage: ?          OTHER FREQUENCY:DAILY X 14D/21D;?
     Route: 048
     Dates: start: 20190415, end: 20190426

REACTIONS (5)
  - Chest pain [None]
  - Oedema [None]
  - Dyspnoea [None]
  - Cardiac failure congestive [None]
  - Paraesthesia [None]

NARRATIVE: CASE EVENT DATE: 20190426
